FAERS Safety Report 19043196 (Version 1)
Quarter: 2021Q1

REPORT INFORMATION
  Report Type: Spontaneous
  Country: US (occurrence: US)
  Receive Date: 20210322
  Receipt Date: 20210322
  Transmission Date: 20210420
  Serious: No
  Sender: FDA-Public Use
  Company Number: None

PATIENT
  Age: 26 Year
  Sex: Female
  Weight: 48.6 kg

DRUGS (1)
  1. ETONOGESTREL?EE VAGINAL RING [Suspect]
     Active Substance: ETHINYL ESTRADIOL\ETONOGESTREL
     Indication: CONTRACEPTION
     Dosage: ?          QUANTITY:1 RING;OTHER FREQUENCY:EVERY 3 WEEKS;?
     Route: 067
     Dates: start: 20210301, end: 20210322

REACTIONS (2)
  - Device expulsion [None]
  - Complication associated with device [None]

NARRATIVE: CASE EVENT DATE: 20210301
